FAERS Safety Report 12687318 (Version 1)
Quarter: 2016Q3

REPORT INFORMATION
  Report Type: Spontaneous
  Country: US (occurrence: US)
  Receive Date: 20160825
  Receipt Date: 20160825
  Transmission Date: 20161109
  Serious: Yes (Hospitalization, Other)
  Sender: FDA-Public Use
  Company Number: US-TEVA-686089USA

PATIENT
  Age: 63 Year
  Sex: Male

DRUGS (1)
  1. MORPHINE EXTENDED RELEASE [Suspect]
     Active Substance: MORPHINE
     Indication: OVERDOSE
     Route: 065

REACTIONS (3)
  - Overdose [Recovering/Resolving]
  - Leukoencephalopathy [Recovering/Resolving]
  - Hypoxia [Recovering/Resolving]
